FAERS Safety Report 23921037 (Version 1)
Quarter: 2024Q2

REPORT INFORMATION
  Report Type: Spontaneous
  Country: US (occurrence: None)
  Receive Date: 20240530
  Receipt Date: 20240530
  Transmission Date: 20240716
  Serious: Yes (Hospitalization)
  Sender: FDA-Public Use
  Company Number: None

PATIENT
  Age: 76 Year
  Sex: Male
  Weight: 78 kg

DRUGS (1)
  1. LISINOPRIL [Suspect]
     Active Substance: LISINOPRIL
     Indication: Pollakiuria
     Dosage: FREQUENCY : DAILY;?
     Route: 048
     Dates: start: 20231219, end: 20240130

REACTIONS (2)
  - Pollakiuria [None]
  - Therapy cessation [None]

NARRATIVE: CASE EVENT DATE: 20240130
